FAERS Safety Report 8854488 (Version 2)
Quarter: 2014Q3

REPORT INFORMATION
  Report Type: Spontaneous
  Country: US (occurrence: US)
  Receive Date: 20121023
  Receipt Date: 20140801
  Transmission Date: 20150326
  Serious: Yes (Death, Hospitalization, Other)
  Sender: FDA-Public Use
  Company Number: US-009507513-2011SP014807

PATIENT
  Sex: Female
  Weight: 132.45 kg

DRUGS (17)
  1. SINGULAIR [Concomitant]
     Active Substance: MONTELUKAST SODIUM
  2. NUVARING [Suspect]
     Active Substance: ETHINYL ESTRADIOL\ETONOGESTREL
     Indication: CONTRACEPTION
     Route: 067
     Dates: start: 20080618, end: 20090410
  3. RESTORIL (TEMAZEPAM) [Concomitant]
  4. CLARITIN [Concomitant]
     Active Substance: LORATADINE
  5. BACLOFEN. [Concomitant]
     Active Substance: BACLOFEN
  6. SOMA [Concomitant]
     Active Substance: CARISOPRODOL
  7. URECHOLINE [Concomitant]
     Active Substance: BETHANECHOL CHLORIDE
  8. XOPENEX [Concomitant]
     Active Substance: LEVALBUTEROL HYDROCHLORIDE
  9. ZYPREXA [Concomitant]
     Active Substance: OLANZAPINE
  10. PRILOSEC [Concomitant]
     Active Substance: OMEPRAZOLE MAGNESIUM
  11. BACTRIM [Concomitant]
     Active Substance: SULFAMETHOXAZOLE\TRIMETHOPRIM
  12. NASACORT [Concomitant]
     Active Substance: TRIAMCINOLONE ACETONIDE
  13. LYRICA [Concomitant]
     Active Substance: PREGABALIN
  14. ATIVAN [Concomitant]
     Active Substance: LORAZEPAM
  15. COGENTIN [Concomitant]
     Active Substance: BENZTROPINE MESYLATE
  16. DARVOCET-N 100 [Concomitant]
     Active Substance: ACETAMINOPHEN\PROPOXYPHENE NAPSYLATE
  17. EFFEXOR [Concomitant]
     Active Substance: VENLAFAXINE HYDROCHLORIDE

REACTIONS (14)
  - Drug dependence [Unknown]
  - Pulmonary embolism [Fatal]
  - Intentional overdose [Unknown]
  - Paranoia [Unknown]
  - Hypertensive heart disease [Recovered/Resolved]
  - Breast tenderness [Unknown]
  - Pain [Unknown]
  - Pulmonary infarction [Fatal]
  - Deep vein thrombosis [Fatal]
  - Bipolar disorder [Unknown]
  - Musculoskeletal pain [Unknown]
  - Suicide attempt [Unknown]
  - Substance abuse [Unknown]
  - Abdominal pain lower [Unknown]

NARRATIVE: CASE EVENT DATE: 20080626
